FAERS Safety Report 18359514 (Version 3)
Quarter: 2020Q4

REPORT INFORMATION
  Report Type: Spontaneous
  Country: US (occurrence: US)
  Receive Date: 20201008
  Receipt Date: 20201111
  Transmission Date: 20210114
  Serious: No
  Sender: FDA-Public Use
  Company Number: US-009507513-2010USA001383

PATIENT
  Age: 37 Year
  Sex: Female
  Weight: 63.04 kg

DRUGS (1)
  1. NEXPLANON [Suspect]
     Active Substance: ETONOGESTREL
     Dosage: 1 ROD (68 MG); EVERY 3 YEARS, LEFT ARM
     Route: 059
     Dates: start: 20181105, end: 20200922

REACTIONS (3)
  - Device kink [Recovered/Resolved]
  - Implant site pruritus [Recovered/Resolved]
  - Implant site pain [Recovered/Resolved]

NARRATIVE: CASE EVENT DATE: 20200918
